FAERS Safety Report 17961971 (Version 1)
Quarter: 2020Q2

REPORT INFORMATION
  Report Type: Spontaneous
  Country: US (occurrence: US)
  Receive Date: 20200629
  Receipt Date: 20200629
  Transmission Date: 20200714
  Serious: Yes (Disabling, Other)
  Sender: FDA-Public Use
  Company Number: None

PATIENT
  Age: 74 Year
  Sex: Female
  Weight: 89.55 kg

DRUGS (3)
  1. STIOLTO RESPIMAT [Suspect]
     Active Substance: OLODATEROL HYDROCHLORIDE\TIOTROPIUM BROMIDE MONOHYDRATE
     Indication: ASTHMA
     Dosage: ?          QUANTITY:2 INHALATION(S);?
     Route: 055
     Dates: start: 20200618, end: 20200628
  2. FISH OIL [Concomitant]
     Active Substance: FISH OIL
  3. CALCIUM [Concomitant]
     Active Substance: CALCIUM

REACTIONS (2)
  - Chest pain [None]
  - Tachycardia [None]

NARRATIVE: CASE EVENT DATE: 20200628
